FAERS Safety Report 9692861 (Version 2)
Quarter: 2013Q4

REPORT INFORMATION
  Report Type: Spontaneous
  Country: TR (occurrence: TR)
  Receive Date: 20131118
  Receipt Date: 20131118
  Transmission Date: 20140711
  Serious: Yes (Hospitalization)
  Sender: FDA-Public Use
  Company Number: TR-AMGEN-TURSP2013071555

PATIENT
  Age: 49 Year
  Sex: Male
  Weight: 44.5 kg

DRUGS (7)
  1. MIMPARA [Suspect]
     Indication: HYPERPARATHYROIDISM SECONDARY
     Dosage: 30 UNK, QD
     Route: 048
     Dates: start: 20130101, end: 20130201
  2. MIMPARA [Suspect]
     Indication: RENAL FAILURE CHRONIC
  3. ARANESP [Suspect]
     Indication: PRODUCT USED FOR UNKNOWN INDICATION
     Route: 065
  4. DOLVEN [Concomitant]
     Dosage: UNK UNK, QD
  5. ONE ALPHA [Concomitant]
     Dosage: 2 MUG, IN EACH SESSION
  6. RENAGEL                            /01459901/ [Concomitant]
     Dosage: UNK UNK, TID
     Route: 048
  7. VENOFER [Concomitant]
     Route: 042

REACTIONS (2)
  - Arthralgia [Unknown]
  - Myalgia [Unknown]
